FAERS Safety Report 12793752 (Version 1)
Quarter: 2016Q3

REPORT INFORMATION
  Report Type: Spontaneous
  Country: US (occurrence: US)
  Receive Date: 20160929
  Receipt Date: 20160929
  Transmission Date: 20161109
  Serious: No
  Sender: FDA-Public Use
  Company Number: US-JAZZ-2016-US-011725

PATIENT
  Sex: Female

DRUGS (52)
  1. CLARITIN [Concomitant]
     Active Substance: LORATADINE
  2. LISINOPRIL. [Concomitant]
     Active Substance: LISINOPRIL
  3. VOLTAREN [Concomitant]
     Active Substance: DICLOFENAC SODIUM
  4. VICTOZA 2-PAK [Concomitant]
  5. ALLEGRA-D [Concomitant]
     Active Substance: FEXOFENADINE\PSEUDOEPHEDRINE
  6. BUPRENORPHINE HCL [Concomitant]
     Active Substance: BUPRENORPHINE HYDROCHLORIDE
  7. HYDROCHLOROTHIAZID [Concomitant]
     Active Substance: HYDROCHLOROTHIAZIDE
  8. XYREM [Suspect]
     Active Substance: SODIUM OXYBATE
     Dosage: 4.5 G, BID
     Route: 048
     Dates: start: 201207, end: 2013
  9. INVOKANA [Suspect]
     Active Substance: CANAGLIFLOZIN
     Indication: PRODUCT USED FOR UNKNOWN INDICATION
     Dosage: UNK
     Dates: start: 20151210, end: 20160531
  10. LIDODERM [Concomitant]
     Active Substance: LIDOCAINE
  11. ACIPHEX [Concomitant]
     Active Substance: RABEPRAZOLE SODIUM
  12. ZOFRAN [Concomitant]
     Active Substance: ONDANSETRON HYDROCHLORIDE
  13. PROVERA [Concomitant]
     Active Substance: MEDROXYPROGESTERONE ACETATE
  14. XYREM [Suspect]
     Active Substance: SODIUM OXYBATE
     Indication: NARCOLEPSY
     Dosage: 2.5 G, BID
     Route: 048
     Dates: start: 200808, end: 200809
  15. XYREM [Suspect]
     Active Substance: SODIUM OXYBATE
     Dosage: 4.5 G, BID
     Route: 048
     Dates: start: 201002, end: 2010
  16. AMARYL [Concomitant]
     Active Substance: GLIMEPIRIDE
  17. HUMALOG [Concomitant]
     Active Substance: INSULIN LISPRO
  18. PROPRANOLOL ER [Concomitant]
  19. CYMBALTA [Concomitant]
     Active Substance: DULOXETINE HYDROCHLORIDE
  20. XYREM [Suspect]
     Active Substance: SODIUM OXYBATE
     Dosage: 4.5 G, BID
     Route: 048
     Dates: start: 200810, end: 2009
  21. XYREM [Suspect]
     Active Substance: SODIUM OXYBATE
     Dosage: 4.5 G, BID
     Route: 048
     Dates: start: 201407
  22. BUTRANS [Concomitant]
     Active Substance: BUPRENORPHINE
  23. APIDRA [Concomitant]
     Active Substance: INSULIN GLULISINE
  24. DICYCLOMINE [Concomitant]
     Active Substance: DICYCLOMINE HYDROCHLORIDE
  25. EPIPEN [Concomitant]
     Active Substance: EPINEPHRINE
  26. FENTANYL. [Concomitant]
     Active Substance: FENTANYL
  27. FLEXERIL [Concomitant]
     Active Substance: CYCLOBENZAPRINE HYDROCHLORIDE
  28. MOBIC [Concomitant]
     Active Substance: MELOXICAM
  29. XYREM [Suspect]
     Active Substance: SODIUM OXYBATE
     Dosage: 4.5 G, BID
     Route: 048
     Dates: start: 201102, end: 2011
  30. ATORVASTATIN [Concomitant]
     Active Substance: ATORVASTATIN
  31. GABAPENTIN. [Concomitant]
     Active Substance: GABAPENTIN
  32. IMITREX [Concomitant]
     Active Substance: SUMATRIPTAN SUCCINATE
  33. TYLENOL ARTHRITIS ER [Concomitant]
  34. VITAMIN D3 [Concomitant]
     Active Substance: CHOLECALCIFEROL
  35. ZETIA [Concomitant]
     Active Substance: EZETIMIBE
  36. XYREM [Suspect]
     Active Substance: SODIUM OXYBATE
     Indication: CATAPLEXY
     Dosage: 3.5 G, BID
     Route: 048
     Dates: start: 200809, end: 200810
  37. TRAMADOL ER [Concomitant]
     Active Substance: TRAMADOL HYDROCHLORIDE
  38. BYDUREON [Concomitant]
     Active Substance: EXENATIDE
  39. DICLOFENAC SODIUM DR [Concomitant]
     Active Substance: DICLOFENAC SODIUM
  40. MULTIVITAMINS [Concomitant]
     Active Substance: VITAMINS
  41. PRAVASTATIN SODIUM. [Concomitant]
     Active Substance: PRAVASTATIN SODIUM
  42. TRAMADOL HCL [Concomitant]
     Active Substance: TRAMADOL HYDROCHLORIDE
  43. NORCO [Concomitant]
     Active Substance: ACETAMINOPHEN\HYDROCODONE BITARTRATE
  44. VICODIN [Concomitant]
     Active Substance: ACETAMINOPHEN\HYDROCODONE BITARTRATE
  45. HYOSCYAMINE SULFATE. [Concomitant]
     Active Substance: HYOSCYAMINE SULFATE
  46. LANTUS [Concomitant]
     Active Substance: INSULIN GLARGINE
  47. VITAMIN B12 [Concomitant]
     Active Substance: CYANOCOBALAMIN
  48. ADDERALL XR [Concomitant]
     Active Substance: AMPHETAMINE ASPARTATE\AMPHETAMINE SULFATE\DEXTROAMPHETAMINE SACCHARATE\DEXTROAMPHETAMINE SULFATE
  49. FIORICET [Concomitant]
     Active Substance: ACETAMINOPHEN\BUTALBITAL\CAFFEINE
  50. ZANTAC [Concomitant]
     Active Substance: RANITIDINE HYDROCHLORIDE
  51. CELEBREX [Concomitant]
     Active Substance: CELECOXIB
  52. PRAVACHOL [Concomitant]
     Active Substance: PRAVASTATIN SODIUM

REACTIONS (3)
  - Migraine with aura [Not Recovered/Not Resolved]
  - Fungal infection [Unknown]
  - Urinary tract infection [Unknown]

NARRATIVE: CASE EVENT DATE: 2015
